FAERS Safety Report 9298106 (Version 2)
Quarter: 2013Q3

REPORT INFORMATION
  Report Type: Spontaneous
  Country: JP (occurrence: JP)
  Receive Date: 20130520
  Receipt Date: 20130722
  Transmission Date: 20140515
  Serious: Yes (Hospitalization, Other)
  Sender: FDA-Public Use
  Company Number: JP-ELI_LILLY_AND_COMPANY-JP201305003118

PATIENT
  Age: 80 Year
  Sex: Female
  Weight: 42.4 kg

DRUGS (10)
  1. FORTEO [Suspect]
     Indication: OSTEOPOROSIS
     Dosage: 20 UG, QD
     Route: 058
     Dates: start: 201202
  2. METHOTREXATE [Concomitant]
     Indication: RHEUMATOID ARTHRITIS
     Dosage: UNK
     Route: 048
     Dates: start: 2008
  3. PREDNISOLONE [Concomitant]
     Indication: RHEUMATOID ARTHRITIS
     Dosage: UNK
     Route: 048
     Dates: start: 2008
  4. GASTER D [Concomitant]
     Dosage: UNK
     Route: 048
  5. NITRODERM [Concomitant]
     Dosage: UNK
     Route: 061
  6. PROGRAF [Concomitant]
     Dosage: UNK
     Route: 048
  7. SULPIRIDE [Concomitant]
     Dosage: UNK
     Route: 048
  8. LIPITOR [Concomitant]
     Dosage: UNK
     Route: 048
  9. FORSENID                           /00571901/ [Concomitant]
     Dosage: UNK
     Route: 048
  10. NERIPROCT [Concomitant]
     Route: 065

REACTIONS (3)
  - Decreased appetite [Recovering/Resolving]
  - Pancytopenia [Recovering/Resolving]
  - Dysphagia [Unknown]
